FAERS Safety Report 7706263-9 (Version None)
Quarter: 2011Q3

REPORT INFORMATION
  Report Type: 
  Country: None (occurrence: None)
  Receive Date: 20110824
  Receipt Date: 20110817
  Transmission Date: 20111222
  Serious: Yes (Disabling)
  Sender: FDA-Public Use
  Company Number: FR-ROCHE-791944

PATIENT
  Sex: Female
  Weight: 79 kg

DRUGS (11)
  1. PREDNISOLONE [Suspect]
     Route: 065
     Dates: start: 20100820
  2. CALCIUM CARBONATE [Concomitant]
     Dates: start: 20101125
  3. NEXIUM [Concomitant]
     Dates: start: 20100820
  4. ZOPICLONE [Concomitant]
     Dates: start: 20100620
  5. PREDNISONE [Concomitant]
  6. IRINOTECAN HCL [Suspect]
     Indication: GLIOBLASTOMA
     Dosage: LAST DOSE PRIOR TO SAE: 05 JULY 2011.
     Route: 042
     Dates: start: 20100930
  7. TEMOZOLOMIDE [Suspect]
     Indication: GLIOBLASTOMA
     Dosage: LAST DOSE: 27 DEC 2010
     Route: 048
     Dates: start: 20101216
  8. LEXOMIL [Concomitant]
     Dates: start: 20100915
  9. TRAMADOL HCL [Concomitant]
     Dates: start: 20110710
  10. KEPPRA [Concomitant]
     Dates: start: 20100820
  11. BEVACIZUMAB [Suspect]
     Indication: GLIOBLASTOMA
     Dosage: LAST DOSE PRIOR TO SAE: 05 JULY 2011.
     Route: 042
     Dates: start: 20100930

REACTIONS (1)
  - OSTEOPOROTIC FRACTURE [None]
